FAERS Safety Report 9137708 (Version 1)
Quarter: 2013Q1

REPORT INFORMATION
  Report Type: Spontaneous
  Country: US (occurrence: US)
  Receive Date: 20130304
  Receipt Date: 20130304
  Transmission Date: 20140127
  Serious: No
  Sender: FDA-Public Use
  Company Number: US-ENDO PHARMACEUTICALS INC.-PERC20120012

PATIENT
  Sex: Male
  Weight: 154.36 kg

DRUGS (2)
  1. PERCOCET-5 [Suspect]
     Indication: PAIN IN EXTREMITY
     Dosage: 5 MG/325 MG
     Route: 048
  2. PERCOCET-5 [Suspect]
     Indication: ARTHRITIS

REACTIONS (4)
  - Product commingling [Unknown]
  - Pain in extremity [Not Recovered/Not Resolved]
  - Hypoaesthesia [Not Recovered/Not Resolved]
  - Hypersomnia [Not Recovered/Not Resolved]
